FAERS Safety Report 16320757 (Version 1)
Quarter: 2019Q2

REPORT INFORMATION
  Report Type: Spontaneous
  Country: CN (occurrence: CN)
  Receive Date: 20190516
  Receipt Date: 20190516
  Transmission Date: 20190711
  Serious: Yes (Other)
  Sender: FDA-Public Use
  Company Number: CN-ELI_LILLY_AND_COMPANY-CN201905005630

PATIENT
  Age: 62 Year
  Sex: Female

DRUGS (2)
  1. BRIGATINIB [Concomitant]
     Active Substance: BRIGATINIB
     Indication: LUNG ADENOCARCINOMA STAGE IV
     Dosage: 90 MG, DAILY
     Route: 065
     Dates: start: 201707
  2. ERBITUX [Suspect]
     Active Substance: CETUXIMAB
     Indication: LUNG ADENOCARCINOMA STAGE IV
     Dosage: 600 MG, MONTHLY (1/M)
     Route: 042
     Dates: start: 201707

REACTIONS (3)
  - Off label use [Unknown]
  - Fatigue [Unknown]
  - Metastases to central nervous system [Unknown]

NARRATIVE: CASE EVENT DATE: 2018
